FAERS Safety Report 24765681 (Version 1)
Quarter: 2024Q4

REPORT INFORMATION
  Report Type: Spontaneous
  Country: US (occurrence: None)
  Receive Date: 20241223
  Receipt Date: 20241223
  Transmission Date: 20250114
  Serious: Yes (Death, Hospitalization)
  Sender: Public
  Company Number: None

PATIENT
  Age: 72 Year
  Sex: Male
  Weight: 98.5 kg

DRUGS (5)
  1. FLUOROURACIL [Suspect]
     Active Substance: FLUOROURACIL
     Dates: end: 20240619
  2. LEUCOVORIN CALCIUM [Suspect]
     Active Substance: LEUCOVORIN CALCIUM
     Dates: end: 20240619
  3. ELOXATIN [Suspect]
     Active Substance: OXALIPLATIN
     Dates: end: 20240619
  4. GEMCITABINE [Suspect]
     Active Substance: GEMCITABINE
  5. ABRAXANE [Suspect]
     Active Substance: PACLITAXEL

REACTIONS (1)
  - Hospice care [None]

NARRATIVE: CASE EVENT DATE: 20241202
